FAERS Safety Report 7403444-9 (Version None)
Quarter: 2011Q2

REPORT INFORMATION
  Report Type: 
  Country: None (occurrence: None)
  Receive Date: 20110408
  Receipt Date: 20110330
  Transmission Date: 20111010
  Serious: Yes (Other)
  Sender: FDA-Public Use
  Company Number: A0921717A

PATIENT
  Sex: Female

DRUGS (3)
  1. DEPAKOTE [Suspect]
     Indication: BIPOLAR DISORDER
     Route: 065
  2. LAMICTAL [Suspect]
     Indication: BIPOLAR DISORDER
     Route: 065
  3. ABILIFY [Suspect]
     Indication: BIPOLAR DISORDER
     Route: 065

REACTIONS (4)
  - DIABETES MELLITUS [None]
  - WEIGHT INCREASED [None]
  - DRUG INEFFECTIVE [None]
  - BIPOLAR DISORDER [None]
